FAERS Safety Report 4850150-0 (Version None)
Quarter: 2005Q4

REPORT INFORMATION
  Report Type: 
  Country: None (occurrence: None)
  Receive Date: 20051123
  Receipt Date: 20050627
  Transmission Date: 20060501
  Serious: Yes (Hospitalization, Other)
  Sender: FDA-Public Use
  Company Number: 2005093134

PATIENT
  Sex: Female

DRUGS (5)
  1. LIPITOR [Suspect]
     Indication: ILL-DEFINED DISORDER
     Dosage: 40 MG (40 MG 1 IN 1 D) ORAL
     Route: 048
     Dates: start: 20010101, end: 20050101
  2. LOTREL [Concomitant]
  3. GLUCOPHAGE [Concomitant]
  4. ACTOS [Concomitant]
  5. CIPRO [Concomitant]

REACTIONS (4)
  - DIABETES MELLITUS [None]
  - MYALGIA [None]
  - RHABDOMYOLYSIS [None]
  - UNEVALUABLE EVENT [None]
